FAERS Safety Report 15706766 (Version 9)
Quarter: 2019Q2

REPORT INFORMATION
  Report Type: Spontaneous
  Country: US (occurrence: US)
  Receive Date: 20181210
  Receipt Date: 20190507
  Transmission Date: 20190711
  Serious: Yes (Death, Hospitalization)
  Sender: FDA-Public Use
  Company Number: US-ACTELION-A-NJ2018-183424

PATIENT
  Sex: Male
  Weight: 81.63 kg

DRUGS (13)
  1. POTASSIUM CHLORIDE. [Concomitant]
     Active Substance: POTASSIUM CHLORIDE
  2. METOLAZONE. [Concomitant]
     Active Substance: METOLAZONE
  3. MIDAMOR [Concomitant]
     Active Substance: AMILORIDE HYDROCHLORIDE
  4. TORSEMIDE. [Concomitant]
     Active Substance: TORSEMIDE
  5. HYDROCODONE [Concomitant]
     Active Substance: HYDROCODONE
  6. ALPRAZOLAM. [Concomitant]
     Active Substance: ALPRAZOLAM
  7. OPSUMIT [Suspect]
     Active Substance: MACITENTAN
     Indication: PULMONARY HYPERTENSION
     Dosage: 10 MG, QD
     Route: 048
  8. FERROUS GLUCONATE [Concomitant]
     Active Substance: FERROUS GLUCONATE
  9. VELETRI [Suspect]
     Active Substance: EPOPROSTENOL
     Indication: PULMONARY HYPERTENSION
     Dosage: 59 NG/KG, PER MIN
     Route: 042
  10. ADCIRCA [Concomitant]
     Active Substance: TADALAFIL
  11. TAPAZOLE [Concomitant]
     Active Substance: METHIMAZOLE
  12. VITAMIN C [Concomitant]
     Active Substance: ASCORBIC ACID
  13. AMIODARONE [Concomitant]
     Active Substance: AMIODARONE

REACTIONS (22)
  - Clostridium difficile colitis [Unknown]
  - Pain [Unknown]
  - Palpitations [Unknown]
  - Cardiogenic shock [Unknown]
  - Skin lesion [Unknown]
  - Pain in extremity [Unknown]
  - Pulmonary arterial hypertension [Fatal]
  - Vascular device infection [Unknown]
  - Cardiac output decreased [Unknown]
  - Hypervolaemia [Unknown]
  - Hypotension [Unknown]
  - Chest pain [Unknown]
  - Headache [Unknown]
  - Unevaluable event [Unknown]
  - Dyspnoea [Unknown]
  - Fluid overload [Unknown]
  - Weight increased [Unknown]
  - Acute kidney injury [Unknown]
  - Oliguria [Unknown]
  - Pain in jaw [Unknown]
  - Malaise [Unknown]
  - Diarrhoea [Unknown]
